FAERS Safety Report 7370265-5 (Version None)
Quarter: 2011Q1

REPORT INFORMATION
  Report Type: 
  Country: None (occurrence: None)
  Receive Date: 20110323
  Receipt Date: 20110317
  Transmission Date: 20110831
  Serious: Yes (Death, Hospitalization)
  Sender: FDA-Public Use
  Company Number: PHHY2011IL21718

PATIENT
  Age: 40 Year
  Sex: Female

DRUGS (1)
  1. GLEEVEC [Suspect]
     Indication: CHRONIC MYELOID LEUKAEMIA
     Dosage: 400 MG, UNK
     Route: 048

REACTIONS (4)
  - PANCYTOPENIA [None]
  - CHRONIC MYELOID LEUKAEMIA [None]
  - SEPSIS [None]
  - OVERDOSE [None]
